FAERS Safety Report 4334729-0 (Version None)
Quarter: 2004Q2

REPORT INFORMATION
  Report Type: 
  Country: None (occurrence: None)
  Receive Date: 20040405
  Receipt Date: 20040323
  Transmission Date: 20050107
  Serious: Yes (Hospitalization, Other)
  Sender: FDA-Public Use
  Company Number: US-JNJFOC-20040102085

PATIENT
  Age: 66 Year
  Sex: Female
  Weight: 85.2762 kg

DRUGS (27)
  1. REMICADE [Suspect]
     Indication: CROHN'S DISEASE
     Dosage: 400 MG, 1 IN 1 TOTAL (SEE I MAGE)
     Dates: start: 20010809
  2. REMICADE [Suspect]
     Indication: CROHN'S DISEASE
     Dosage: 400 MG, 1 IN 1 TOTAL (SEE I MAGE)
     Dates: start: 20010821
  3. REMICADE [Suspect]
     Indication: CROHN'S DISEASE
     Dosage: 400 MG, 1 IN 1 TOTAL (SEE I MAGE)
     Dates: start: 20010925
  4. REMICADE [Suspect]
     Indication: CROHN'S DISEASE
     Dosage: 400 MG, 1 IN 1 TOTAL (SEE I MAGE)
     Dates: start: 20020207
  5. REMICADE [Suspect]
     Indication: CROHN'S DISEASE
     Dosage: 400 MG, 1 IN 1 TOTAL (SEE I MAGE)
     Dates: start: 20020502
  6. REMICADE [Suspect]
     Indication: CROHN'S DISEASE
     Dosage: 400 MG, 1 IN 1 TOTAL (SEE I MAGE)
     Dates: start: 20020808
  7. REMICADE [Suspect]
     Indication: CROHN'S DISEASE
     Dosage: 400 MG, 1 IN 1 TOTAL (SEE I MAGE)
     Dates: start: 20020917
  8. REMICADE [Suspect]
     Indication: CROHN'S DISEASE
     Dosage: 400 MG, 1 IN 1 TOTAL (SEE I MAGE)
     Dates: start: 20021010
  9. REMICADE [Suspect]
     Indication: CROHN'S DISEASE
     Dosage: 400 MG, 1 IN 1 TOTAL (SEE I MAGE)
     Dates: start: 20021205
  10. REMICADE [Suspect]
     Indication: CROHN'S DISEASE
     Dosage: 400 MG, 1 IN 1 TOTAL (SEE I MAGE)
     Dates: start: 20030130
  11. REMICADE [Suspect]
     Indication: CROHN'S DISEASE
     Dosage: 400 MG, 1 IN 1 TOTAL (SEE I MAGE)
     Dates: start: 20030313
  12. REMICADE [Suspect]
     Indication: CROHN'S DISEASE
     Dosage: 400 MG, 1 IN 1 TOTAL (SEE I MAGE)
     Dates: start: 20030424
  13. REMICADE [Suspect]
     Indication: CROHN'S DISEASE
     Dosage: 400 MG, 1 IN 1 TOTAL (SEE I MAGE)
     Dates: start: 20030605
  14. REMICADE [Suspect]
     Indication: CROHN'S DISEASE
     Dosage: 400 MG, 1 IN 1 TOTAL (SEE I MAGE)
     Dates: start: 20030717
  15. DURAGESIC [Suspect]
     Indication: DRUG USE FOR UNKNOWN INDICATION
     Dosage: 75 MG, 1 IN 72 HOUR
  16. BENADRYL [Concomitant]
  17. TYLENOL [Concomitant]
  18. SOLU-CORTEF [Concomitant]
  19. PROMETRIUM [Concomitant]
  20. ESTROPIPATE [Concomitant]
  21. COZAAR [Concomitant]
  22. DYAZIDE [Concomitant]
  23. COLAZAL (BALSALAZIDE SODIUM) [Concomitant]
  24. ASACOL [Concomitant]
  25. LEVBID (HYOSCYAMINE SULFATE) [Concomitant]
  26. IRON [Concomitant]
  27. ZOCOR [Concomitant]

REACTIONS (15)
  - ABNORMAL BEHAVIOUR [None]
  - BACK PAIN [None]
  - BRAIN NEOPLASM MALIGNANT [None]
  - DIABETES MELLITUS NON-INSULIN-DEPENDENT [None]
  - DYSPNOEA [None]
  - FALL [None]
  - FEMALE GENITAL-DIGESTIVE TRACT FISTULA [None]
  - HYPERCHOLESTEROLAEMIA [None]
  - HYPOXIA [None]
  - MAJOR DEPRESSION [None]
  - METASTASES TO BONE [None]
  - MOOD ALTERED [None]
  - OEDEMA PERIPHERAL [None]
  - OSTEOPOROSIS [None]
  - PSYCHOTIC DISORDER [None]
